FAERS Safety Report 12912551 (Version 2)
Quarter: 2016Q4

REPORT INFORMATION
  Report Type: Spontaneous
  Country: US (occurrence: US)
  Receive Date: 20161104
  Receipt Date: 20161213
  Transmission Date: 20170207
  Serious: No
  Sender: FDA-Public Use
  Company Number: US-PFIZER INC-2016513886

PATIENT
  Sex: Male
  Weight: 101 kg

DRUGS (5)
  1. SYNTHROID [Concomitant]
     Active Substance: LEVOTHYROXINE SODIUM
     Dosage: 75 MG, DAILY, EVERY MORNING
     Route: 048
  2. HYDROCORTISONE. [Concomitant]
     Active Substance: HYDROCORTISONE
     Dosage: 5 MG, 2X/DAY, 5MG TABLET BY MOUTH TWICE DAILY
     Route: 048
  3. HYDROCORTISONE. [Concomitant]
     Active Substance: HYDROCORTISONE
     Dosage: 20 MG, 3X/DAY, INCREASE ON SICK DAYS TO 4 TABLETS BY MOUTH 3 TIMES DAILY
     Route: 048
  4. GENOTROPIN [Suspect]
     Active Substance: SOMATROPIN
     Indication: GROWTH HORMONE DEFICIENCY
     Dosage: 2.4 IU, 1X/DAY EVERY EVENING
     Route: 058
  5. ANDROGEL [Concomitant]
     Active Substance: TESTOSTERONE
     Indication: DELAYED PUBERTY
     Dosage: 2 PUMPS TOPICALLY ONCE DAILY IN THE MORNING
     Route: 061

REACTIONS (2)
  - Arthropathy [Not Recovered/Not Resolved]
  - Cyst [Unknown]
